FAERS Safety Report 5475727-3 (Version None)
Quarter: 2007Q4

REPORT INFORMATION
  Report Type: 
  Country: None (occurrence: None)
  Receive Date: 20071003
  Receipt Date: 20071001
  Transmission Date: 20080405
  Serious: Yes (Disabling)
  Sender: FDA-Public Use
  Company Number: NL-ASTRAZENECA-2007AC01866

PATIENT
  Age: 18829 Day
  Sex: Female
  Weight: 75 kg

DRUGS (2)
  1. ROSUVASTATIN [Suspect]
     Indication: CORONARY ARTERY DISEASE
     Dates: start: 20070912, end: 20070917
  2. RENITEC [Concomitant]
     Dates: start: 20030101

REACTIONS (2)
  - VISUAL ACUITY REDUCED [None]
  - VITREOUS DETACHMENT [None]
